FAERS Safety Report 12244740 (Version 2)
Quarter: 2017Q3

REPORT INFORMATION
  Report Type: Spontaneous
  Country: US (occurrence: US)
  Receive Date: 20160407
  Receipt Date: 20170818
  Transmission Date: 20171127
  Serious: Yes (Hospitalization)
  Sender: FDA-Public Use
  Company Number: US-ASTRAZENECA-2016SE36567

PATIENT
  Age: 81 Year
  Sex: Male
  Weight: 57.2 kg

DRUGS (3)
  1. TUDORZA PRESSAIR [Suspect]
     Active Substance: ACLIDINIUM BROMIDE
     Indication: PULMONARY HYPERTENSION
     Route: 055
     Dates: start: 2015
  2. TUDORZA PRESSAIR [Suspect]
     Active Substance: ACLIDINIUM BROMIDE
     Indication: PULMONARY HYPERTENSION
     Route: 055
     Dates: start: 20151231
  3. TUDORZA PRESSAIR [Suspect]
     Active Substance: ACLIDINIUM BROMIDE
     Indication: PULMONARY HYPERTENSION
     Route: 055
     Dates: start: 20160306

REACTIONS (3)
  - Pulmonary hypertension [Recovered/Resolved]
  - Product use in unapproved indication [Unknown]
  - Device issue [Unknown]

NARRATIVE: CASE EVENT DATE: 2015
